FAERS Safety Report 24732223 (Version 1)
Quarter: 2024Q4

REPORT INFORMATION
  Report Type: Other
  Country: MK (occurrence: MK)
  Receive Date: 20241213
  Receipt Date: 20241213
  Transmission Date: 20250115
  Serious: Yes (Life-Threatening)
  Sender: B BRAUN
  Company Number: MK-B.Braun Medical Inc.-2167062

PATIENT
  Age: 36 Year
  Sex: Female

DRUGS (6)
  1. MEROPENEM [Suspect]
     Active Substance: MEROPENEM
     Indication: Infection
  2. FLUCONAZOLE [Suspect]
     Active Substance: FLUCONAZOLE
  3. antiviral drugs [Concomitant]
  4. METHYLPREDNISOLONE [Concomitant]
     Active Substance: METHYLPREDNISOLONE
  5. COLISTIN [Suspect]
     Active Substance: COLISTIN
  6. CASPOFUNGIN [Suspect]
     Active Substance: CASPOFUNGIN

REACTIONS (1)
  - Drug ineffective [Unknown]
